FAERS Safety Report 9288491 (Version 2)
Quarter: 2021Q2

REPORT INFORMATION
  Report Type: Spontaneous
  Country: NL (occurrence: NL)
  Receive Date: 20130514
  Receipt Date: 20210610
  Transmission Date: 20210717
  Serious: Yes (Other)
  Sender: FDA-Public Use
  Company Number: PHHY2013NL047135

PATIENT
  Age: 72 Year
  Sex: Female

DRUGS (2)
  1. WARFARIN [Concomitant]
     Active Substance: WARFARIN
     Indication: PRODUCT USED FOR UNKNOWN INDICATION
     Dosage: UNK
     Route: 065
     Dates: start: 200902
  2. PRAVASTATIN. [Suspect]
     Active Substance: PRAVASTATIN
     Indication: PRODUCT USED FOR UNKNOWN INDICATION
     Dosage: UNK
     Route: 065

REACTIONS (7)
  - Blue toe syndrome [Recovered/Resolved]
  - Skin lesion [Recovered/Resolved]
  - Eosinophilia [Recovered/Resolved]
  - Abdominal discomfort [Unknown]
  - Withdrawal syndrome [Unknown]
  - C-reactive protein increased [Recovered/Resolved]
  - Atheroembolism [Recovered/Resolved]

NARRATIVE: CASE EVENT DATE: 200912
